FAERS Safety Report 4780118-4 (Version None)
Quarter: 2005Q3

REPORT INFORMATION
  Report Type: 
  Country: None (occurrence: None)
  Receive Date: 20050914
  Receipt Date: 20050416
  Transmission Date: 20060218
  Serious: Yes (Hospitalization)
  Sender: FDA-Public Use
  Company Number: 163-20785-05040376

PATIENT
  Age: 48 Year
  Sex: Female
  Weight: 80 kg

DRUGS (7)
  1. THALOMID [Suspect]
     Indication: MULTIPLE MYELOMA
     Dosage: ORAL;  200 MG, QD, ORAL
     Route: 048
     Dates: start: 20050225, end: 20050228
  2. THALOMID [Suspect]
     Indication: MULTIPLE MYELOMA
     Dosage: ORAL;  200 MG, QD, ORAL
     Route: 048
     Dates: start: 20040312
  3. VELCADE [Suspect]
     Indication: MULTIPLE MYELOMA
     Dosage: INTRAVENOUS;  1.8 MG, QD, INTRAVENOUS
     Route: 042
     Dates: start: 20050225, end: 20050225
  4. VELCADE [Suspect]
     Indication: MULTIPLE MYELOMA
     Dosage: INTRAVENOUS;  1.8 MG, QD, INTRAVENOUS
     Route: 042
     Dates: start: 20050228, end: 20050228
  5. VELCADE [Suspect]
     Indication: MULTIPLE MYELOMA
     Dosage: INTRAVENOUS;  1.8 MG, QD, INTRAVENOUS
     Route: 042
     Dates: start: 20050304, end: 20050304
  6. VELCADE [Suspect]
     Indication: MULTIPLE MYELOMA
     Dosage: INTRAVENOUS;  1.8 MG, QD, INTRAVENOUS
     Route: 042
     Dates: start: 20050307, end: 20050307
  7. VELCADE [Suspect]
     Indication: MULTIPLE MYELOMA
     Dosage: INTRAVENOUS;  1.8 MG, QD, INTRAVENOUS
     Route: 042
     Dates: start: 20040312

REACTIONS (9)
  - COLITIS [None]
  - DIARRHOEA [None]
  - HYPONATRAEMIA [None]
  - INFLUENZA [None]
  - LIVER FUNCTION TEST [None]
  - MUCOSAL INFLAMMATION [None]
  - PANCYTOPENIA [None]
  - PNEUMONIA [None]
  - SINUSITIS [None]
